FAERS Safety Report 10077442 (Version 1)
Quarter: 2014Q2

REPORT INFORMATION
  Report Type: Spontaneous
  Country: US (occurrence: US)
  Receive Date: 20140414
  Receipt Date: 20140414
  Transmission Date: 20141212
  Serious: Yes (Other)
  Sender: FDA-Public Use
  Company Number: US-TEVA-474850USA

PATIENT
  Age: 20 Month
  Sex: Male

DRUGS (1)
  1. GRANULOCYTE COLONY-STIMULATING FACTOR NOS [Suspect]
     Indication: INFANTILE GENETIC AGRANULOCYTOSIS
     Route: 058

REACTIONS (1)
  - Acute febrile neutrophilic dermatosis [Recovering/Resolving]
